FAERS Safety Report 18387295 (Version 1)
Quarter: 2020Q4

REPORT INFORMATION
  Report Type: Spontaneous
  Country: PL (occurrence: PL)
  Receive Date: 20201015
  Receipt Date: 20201015
  Transmission Date: 20210114
  Serious: Yes (Hospitalization, Other)
  Sender: FDA-Public Use
  Company Number: PHHY2017PL179435

PATIENT
  Age: 12 Year
  Sex: Female

DRUGS (4)
  1. ELOCOM [Concomitant]
     Active Substance: MOMETASONE FUROATE
     Indication: SKIN LESION
     Dosage: UNK, BID
     Route: 061
  2. TRAVOGEN [Suspect]
     Active Substance: ISOCONAZOLE NITRATE
     Indication: TINEA INFECTION
     Dosage: UNK
     Route: 061
  3. LAMISIL [Suspect]
     Active Substance: TERBINAFINE HYDROCHLORIDE
     Indication: TINEA INFECTION
     Dosage: 250 MG, QD
     Route: 065
  4. LAMISIL [Suspect]
     Active Substance: TERBINAFINE HYDROCHLORIDE
     Indication: DERMATOPHYTOSIS OF NAIL

REACTIONS (8)
  - Dermatitis contact [Recovering/Resolving]
  - Drug hypersensitivity [Recovering/Resolving]
  - Pustule [Recovering/Resolving]
  - Hypersensitivity [Unknown]
  - Skin lesion [Recovering/Resolving]
  - Skin oedema [Recovering/Resolving]
  - Skin swelling [Recovering/Resolving]
  - Erythema [Recovering/Resolving]
